FAERS Safety Report 13466787 (Version 1)
Quarter: 2017Q2

REPORT INFORMATION
  Report Type: Spontaneous
  Country: US (occurrence: US)
  Receive Date: 20170421
  Receipt Date: 20170421
  Transmission Date: 20170830
  Serious: No
  Sender: FDA-Public Use
  Company Number: US-ASTRAZENECA-2017SE38919

PATIENT
  Age: 81 Year
  Sex: Female
  Weight: 59 kg

DRUGS (2)
  1. PULMICORT FLEXHALER [Suspect]
     Active Substance: BUDESONIDE
     Indication: ASTHMA
     Route: 055
     Dates: start: 201601, end: 2016
  2. PULMICORT FLEXHALER [Suspect]
     Active Substance: BUDESONIDE
     Indication: ASTHMA
     Route: 055
     Dates: start: 2016

REACTIONS (7)
  - Product use issue [Unknown]
  - Back pain [Recovering/Resolving]
  - Off label use [Unknown]
  - Drug ineffective [Unknown]
  - Malaise [Unknown]
  - Arthralgia [Recovered/Resolved]
  - Sinusitis [Recovered/Resolved]

NARRATIVE: CASE EVENT DATE: 2016
